FAERS Safety Report 24133851 (Version 1)
Quarter: 2024Q3

REPORT INFORMATION
  Report Type: Spontaneous
  Country: US (occurrence: US)
  Receive Date: 20240724
  Receipt Date: 20240724
  Transmission Date: 20241016
  Serious: Yes (Other)
  Sender: JOHNSON AND JOHNSON
  Company Number: US-JNJFOC-20240753930

PATIENT
  Sex: Female

DRUGS (3)
  1. SIMPONI [Suspect]
     Active Substance: GOLIMUMAB
     Indication: Product used for unknown indication
     Route: 058
     Dates: start: 202311, end: 20240419
  2. BENLYSTA [Concomitant]
     Active Substance: BELIMUMAB
     Indication: Product used for unknown indication
     Dates: start: 202405
  3. MOBIC [Concomitant]
     Active Substance: MELOXICAM
     Indication: Product used for unknown indication

REACTIONS (6)
  - Systemic lupus erythematosus [Unknown]
  - Dry eye [Recovered/Resolved]
  - Contact lens intolerance [Not Recovered/Not Resolved]
  - Eye discharge [Recovered/Resolved]
  - Liver function test increased [Recovered/Resolved]
  - Rash [Recovered/Resolved]
